FAERS Safety Report 5679843-2 (Version None)
Quarter: 2008Q1

REPORT INFORMATION
  Report Type: 
  Country: None (occurrence: None)
  Receive Date: 20080324
  Receipt Date: 20080311
  Transmission Date: 20080703
  Serious: No
  Sender: FDA-Public Use
  Company Number: B0511404A

PATIENT
  Age: 20 Year
  Sex: Female

DRUGS (3)
  1. VALTREX [Suspect]
     Indication: HERPES ZOSTER
     Dosage: 1000 MG THREE TIMES PER DAY ORAL
     Route: 048
     Dates: start: 20070516
  2. TERBINAFINE HCL [Concomitant]
  3. OLOPATADINE HCI [Concomitant]

REACTIONS (1)
  - ACUTE GENERALISED EXANTHEMATOUS PUSTULOSIS [None]
